FAERS Safety Report 9925441 (Version 1)
Quarter: 2014Q1

REPORT INFORMATION
  Report Type: Spontaneous
  Country: US (occurrence: None)
  Receive Date: 20140225
  Receipt Date: 20140225
  Transmission Date: 20141002
  Serious: Yes (Hospitalization)
  Sender: FDA-Public Use
  Company Number: None

PATIENT
  Age: 52 Year
  Sex: Female
  Weight: 62.3 kg

DRUGS (11)
  1. BELATACEPT (NULOJIX-BMS) [Suspect]
     Indication: RENAL TRANSPLANT
     Route: 042
     Dates: start: 20131230
  2. CELLCEPT [Suspect]
     Route: 048
     Dates: start: 20131231
  3. ALEMTUZUMAB [Concomitant]
  4. METHYLPREDNISONE [Concomitant]
  5. CLOMITRAZOLE [Concomitant]
  6. ARANESP [Concomitant]
  7. CRESTOR [Concomitant]
  8. TUMS [Concomitant]
  9. DRISDOL [Concomitant]
  10. FOLIC ACID [Concomitant]
  11. PANTOPRAZOLE [Concomitant]

REACTIONS (4)
  - Complications of transplanted kidney [None]
  - Anaemia of chronic disease [None]
  - Diarrhoea [None]
  - Faeces discoloured [None]
